FAERS Safety Report 10995746 (Version 1)
Quarter: 2015Q2

REPORT INFORMATION
  Report Type: Spontaneous
  Country: DK (occurrence: GB)
  Receive Date: 20150407
  Receipt Date: 20150407
  Transmission Date: 20150821
  Serious: Yes (Other)
  Sender: FDA-Public Use
  Company Number: GB-FRI-1000075626

PATIENT
  Age: 20 Year
  Sex: Female
  Weight: 60.32 kg

DRUGS (1)
  1. ESCITALOPRAM [Suspect]
     Active Substance: ESCITALOPRAM OXALATE
     Indication: DEPRESSION
     Dosage: 20 MG
     Route: 048

REACTIONS (12)
  - Confusional state [Recovered/Resolved]
  - Genital hypoaesthesia [Recovering/Resolving]
  - Derealisation [Recovered/Resolved]
  - Menorrhagia [Recovering/Resolving]
  - Nausea [Recovered/Resolved]
  - Abnormal dreams [Recovering/Resolving]
  - Dissociation [Recovered/Resolved]
  - Paraesthesia [Recovered/Resolved]
  - Anxiety [Recovered/Resolved]
  - Flatulence [Not Recovered/Not Resolved]
  - Restlessness [Recovering/Resolving]
  - Anorgasmia [Recovering/Resolving]
